FAERS Safety Report 6449443-5 (Version None)
Quarter: 2009Q4

REPORT INFORMATION
  Report Type: 
  Country: None (occurrence: None)
  Receive Date: 20091120
  Receipt Date: 20091111
  Transmission Date: 20100525
  Serious: Yes (Other)
  Sender: FDA-Public Use
  Company Number: PHEH2007US11294

PATIENT
  Sex: Female

DRUGS (3)
  1. AREDIA [Suspect]
     Indication: METASTASES TO BONE
  2. ZOMETA [Suspect]
     Indication: METASTASES TO BONE
  3. PAMIDRONATE DISODIUM [Suspect]
     Dosage: UNK, UNK

REACTIONS (11)
  - ANHEDONIA [None]
  - ANXIETY [None]
  - DECREASED INTEREST [None]
  - DEFORMITY [None]
  - DISCOMFORT [None]
  - EMOTIONAL DISTRESS [None]
  - HYPOPHAGIA [None]
  - LIFE EXPECTANCY SHORTENED [None]
  - OSTEONECROSIS [None]
  - OVERDOSE [None]
  - PAIN [None]
